FAERS Safety Report 5221867-3 (Version None)
Quarter: 2007Q1

REPORT INFORMATION
  Report Type: 
  Country: None (occurrence: None)
  Receive Date: 20070126
  Receipt Date: 20070126
  Transmission Date: 20070707
  Serious: Yes (Hospitalization)
  Sender: FDA-Public Use
  Company Number: None

PATIENT
  Sex: Female
  Weight: 86.637 kg

DRUGS (17)
  1. VENOFER [Suspect]
     Indication: IRON DEFICIENCY ANAEMIA
     Dosage: 500MG  WEEKLY  IV BOLUS
     Route: 040
     Dates: start: 20060801, end: 20060801
  2. ULTRAM [Concomitant]
  3. ASPIRIN [Concomitant]
  4. METFORMIN HCL [Concomitant]
  5. LISINOPRIL [Concomitant]
  6. LIPITOR [Concomitant]
  7. ATENOLOL [Concomitant]
  8. IRON SULFATETHIAMIN COMPOUND TAB [Concomitant]
  9. OMEPRAZOLE [Concomitant]
  10. HYDROCHLOROTHIAZIDE [Concomitant]
  11. QUININE SULFATE [Concomitant]
  12. LEXAPRO [Concomitant]
  13. VITAMIN CAP [Concomitant]
  14. CALCIUM [Concomitant]
  15. ASCORBIC ACID [Concomitant]
  16. GLYCERIN [Concomitant]
  17. ESTRING [Concomitant]

REACTIONS (8)
  - ARTHRALGIA [None]
  - DIZZINESS [None]
  - FALL [None]
  - FEELING ABNORMAL [None]
  - INFUSION RELATED REACTION [None]
  - JOINT STIFFNESS [None]
  - MUSCULOSKELETAL STIFFNESS [None]
  - NAUSEA [None]
